FAERS Safety Report 18857709 (Version 1)
Quarter: 2021Q1

REPORT INFORMATION
  Report Type: Spontaneous
  Country: DE (occurrence: DE)
  Receive Date: 20210208
  Receipt Date: 20210208
  Transmission Date: 20210420
  Serious: Yes (Life-Threatening, Hospitalization, Other)
  Sender: FDA-Public Use
  Company Number: DE-BIOGEN-2021BI00974006

PATIENT
  Age: 30 Year
  Sex: Male

DRUGS (7)
  1. LEMTRADA [Suspect]
     Active Substance: ALEMTUZUMAB
     Indication: RELAPSING MULTIPLE SCLEROSIS
     Dosage: UNK
     Route: 065
     Dates: start: 20180820
  2. BACLOFEN. [Concomitant]
     Active Substance: BACLOFEN
     Indication: MULTIPLE SCLEROSIS
     Dosage: 10 MG
     Route: 048
     Dates: start: 201701
  3. DEKRISTOL [Concomitant]
     Active Substance: CHOLECALCIFEROL
     Indication: VITAMIN D DEFICIENCY
     Dosage: 1000 IU
     Route: 048
  4. FAMPYRA [Suspect]
     Active Substance: DALFAMPRIDINE
     Indication: MULTIPLE SCLEROSIS
     Dosage: 10 MG
     Route: 048
     Dates: start: 201512
  5. TYSABRI [Suspect]
     Active Substance: NATALIZUMAB
     Indication: MULTIPLE SCLEROSIS
     Route: 042
  6. CORTISONE ACETATE. [Concomitant]
     Active Substance: CORTISONE ACETATE
  7. LEMTRADA [Suspect]
     Active Substance: ALEMTUZUMAB
     Dosage: UNK
     Route: 065
     Dates: end: 20190822

REACTIONS (23)
  - Haemoglobin decreased [Unknown]
  - Chromaturia [Unknown]
  - Aspartate aminotransferase increased [Unknown]
  - Haptoglobin decreased [Unknown]
  - Blood bilirubin increased [Unknown]
  - Reticulocyte count increased [Unknown]
  - Blood calcium decreased [Unknown]
  - Autoimmune haemolytic anaemia [Unknown]
  - Hepatic failure [Unknown]
  - Red blood cell count increased [Unknown]
  - Haematocrit decreased [Unknown]
  - Gamma-glutamyltransferase increased [Unknown]
  - Serum ferritin increased [Unknown]
  - Mean cell haemoglobin increased [Recovered/Resolved]
  - Blood glucose increased [Unknown]
  - Alanine aminotransferase increased [Unknown]
  - Blood bilirubin increased [Unknown]
  - Protein total decreased [Unknown]
  - Red cell distribution width increased [Unknown]
  - Lymphocyte percentage decreased [Unknown]
  - Blood lactate dehydrogenase increased [Unknown]
  - Ceruloplasmin decreased [Unknown]
  - Mean cell volume increased [Unknown]

NARRATIVE: CASE EVENT DATE: 20200710
